FAERS Safety Report 13647735 (Version 1)
Quarter: 2017Q2

REPORT INFORMATION
  Report Type: Spontaneous
  Country: GB (occurrence: GB)
  Receive Date: 20170613
  Receipt Date: 20170613
  Transmission Date: 20170830
  Serious: Yes (Life-Threatening)
  Sender: FDA-Public Use
  Company Number: GB-TEVA-776315ACC

PATIENT
  Age: 78 Year
  Sex: Female
  Weight: 70.5 kg

DRUGS (4)
  1. RAMIPRIL. [Suspect]
     Active Substance: RAMIPRIL
     Indication: PRODUCT USED FOR UNKNOWN INDICATION
     Dosage: 5 MILLIGRAM DAILY;
     Route: 048
     Dates: start: 20170322
  2. FULVESTRANT [Concomitant]
     Active Substance: FULVESTRANT
     Route: 065
     Dates: start: 20170111
  3. VANDETANIB. [Concomitant]
     Active Substance: VANDETANIB
     Route: 065
     Dates: start: 20170111
  4. PARACETAMOL [Concomitant]
     Active Substance: ACETAMINOPHEN
     Route: 048

REACTIONS (3)
  - Hyponatraemia [Recovered/Resolved]
  - Fatigue [Recovered/Resolved with Sequelae]
  - Confusional state [Recovered/Resolved]

NARRATIVE: CASE EVENT DATE: 20170412
